FAERS Safety Report 8346738-5 (Version None)
Quarter: 2012Q2

REPORT INFORMATION
  Report Type: 
  Country: None (occurrence: None)
  Receive Date: 20120509
  Receipt Date: 20120427
  Transmission Date: 20120825
  Serious: Yes (Life-Threatening, Hospitalization)
  Sender: FDA-Public Use
  Company Number: GB-ASTRAZENECA-2012SE27571

PATIENT
  Age: 42 Year
  Sex: Female

DRUGS (13)
  1. PRILOSEC [Suspect]
     Route: 048
  2. VENLAFAXINE [Suspect]
     Route: 048
  3. HYDROXYCHLOROQUINE [Suspect]
     Route: 048
  4. SULFASALAZINE [Suspect]
     Route: 048
  5. FLUCLOXACILLIN [Concomitant]
  6. MICONAZOLE [Concomitant]
  7. SCHERIPROCT [Concomitant]
  8. NYSTATIN [Concomitant]
  9. BENZYDAMINE [Concomitant]
  10. METRONIDAZOLE [Concomitant]
  11. METHOTREXATE [Suspect]
     Route: 048
  12. METHOTREXATE [Suspect]
     Route: 048
  13. GABAPENTIN [Suspect]
     Route: 048

REACTIONS (6)
  - HAEMATEMESIS [None]
  - DIARRHOEA [None]
  - CONTUSION [None]
  - THROMBOCYTOPENIA [None]
  - FULL BLOOD COUNT ABNORMAL [None]
  - ABDOMINAL PAIN [None]
